FAERS Safety Report 4789883-3 (Version None)
Quarter: 2005Q3

REPORT INFORMATION
  Report Type: 
  Country: None (occurrence: None)
  Receive Date: 20050914
  Receipt Date: 20041220
  Transmission Date: 20060218
  Serious: Yes (Death)
  Sender: FDA-Public Use
  Company Number: 163-20785-04120540

PATIENT
  Age: 64 Year
  Sex: Male

DRUGS (3)
  1. THALOMID [Suspect]
     Indication: MYELODYSPLASTIC SYNDROME
     Dosage: 50 MG, DAILY, ORAL
     Route: 048
     Dates: start: 20041014, end: 20041220
  2. THALOMID [Suspect]
  3. THALOMID [Suspect]

REACTIONS (4)
  - ANOREXIA [None]
  - DEATH [None]
  - DISEASE PROGRESSION [None]
  - FATIGUE [None]
